FAERS Safety Report 5898426-2 (Version None)
Quarter: 2008Q3

REPORT INFORMATION
  Report Type: 
  Country: None (occurrence: None)
  Receive Date: 20080925
  Receipt Date: 20071101
  Transmission Date: 20090109
  Serious: No
  Sender: FDA-Public Use
  Company Number: A0690994A

PATIENT
  Age: 52 Year
  Sex: Male

DRUGS (4)
  1. WELLBUTRIN XL [Suspect]
     Indication: DEPRESSION
     Dosage: 450MG PER DAY
     Route: 048
     Dates: start: 20070701
  2. HYDROCHLOROTHIAZIDE [Concomitant]
  3. DIOVAN [Concomitant]
  4. COREG CR [Concomitant]

REACTIONS (3)
  - DIARRHOEA [None]
  - MEDICATION RESIDUE [None]
  - PHARMACEUTICAL PRODUCT COMPLAINT [None]
